FAERS Safety Report 5196107-4 (Version None)
Quarter: 2006Q4

REPORT INFORMATION
  Report Type: 
  Country: None (occurrence: None)
  Receive Date: 20061226
  Receipt Date: 20061215
  Transmission Date: 20070319
  Serious: Yes (Hospitalization, Other)
  Sender: FDA-Public Use
  Company Number: FRWYE858715DEC06

PATIENT
  Age: 57 Year
  Sex: Female

DRUGS (2)
  1. ADVIL [Suspect]
     Dosage: ORAL
     Route: 048
     Dates: start: 20060830, end: 20060831
  2. IMODIUM [Concomitant]

REACTIONS (2)
  - GASTRIC ULCER [None]
  - HAEMOPTYSIS [None]
